FAERS Safety Report 5049031-1 (Version None)
Quarter: 2006Q3

REPORT INFORMATION
  Report Type: 
  Country: None (occurrence: None)
  Receive Date: 20060712
  Receipt Date: 20060123
  Transmission Date: 20061208
  Serious: No
  Sender: FDA-Public Use
  Company Number: US-GLAXOSMITHKLINE-A0590544A

PATIENT
  Sex: Female

DRUGS (1)
  1. IMITREX [Suspect]
     Indication: MIGRAINE
     Route: 048

REACTIONS (4)
  - FEELING OF RELAXATION [None]
  - IMMOBILE [None]
  - PALPITATIONS [None]
  - THINKING ABNORMAL [None]
